FAERS Safety Report 12809853 (Version 1)
Quarter: 2016Q4

REPORT INFORMATION
  Report Type: Spontaneous
  Country: US (occurrence: US)
  Receive Date: 20161005
  Receipt Date: 20161005
  Transmission Date: 20170207
  Serious: Yes (Hospitalization, Other)
  Sender: FDA-Public Use
  Company Number: US-ASTRAZENECA-2016SF03768

PATIENT
  Age: 27 Year
  Sex: Female
  Weight: 56.7 kg

DRUGS (36)
  1. ASPIRIN. [Concomitant]
     Active Substance: ASPIRIN
     Indication: MIGRAINE
     Dosage: 325.0MG AS REQUIRED
     Route: 048
  2. TYLENOL [Concomitant]
     Active Substance: ACETAMINOPHEN
     Indication: MIGRAINE
     Dosage: AS REQUIRED
     Route: 048
  3. DULCOLAX NOS [Concomitant]
     Active Substance: BISACODYL OR DOCUSATE SODIUM
     Indication: CONSTIPATION
     Dosage: 3 TABLETS EVERY 4 DAYS
     Route: 048
  4. OTHER MEDICATION [Suspect]
     Active Substance: UNSPECIFIED INGREDIENT
     Route: 065
  5. KLONOPIN [Concomitant]
     Active Substance: CLONAZEPAM
     Indication: AGITATION
     Dosage: TWICE DAILY AS NEEDED UNSURE OF EXACT DOSE
     Route: 048
  6. ZANTAC [Concomitant]
     Active Substance: RANITIDINE HYDROCHLORIDE
     Indication: GASTROOESOPHAGEAL REFLUX DISEASE
     Route: 048
  7. ZOFRAN [Concomitant]
     Active Substance: ONDANSETRON HYDROCHLORIDE
     Indication: NAUSEA
     Dosage: 8.0MG AS REQUIRED
     Route: 048
  8. BENADRYL [Concomitant]
     Active Substance: DIPHENHYDRAMINE HYDROCHLORIDE
     Indication: MIGRAINE
     Dosage: AS REQUIRED
     Route: 048
  9. KLONOPIN [Concomitant]
     Active Substance: CLONAZEPAM
     Indication: ANXIETY
     Dosage: TWICE DAILY AS NEEDED UNSURE OF EXACT DOSE
     Route: 048
  10. ROBAXIN [Concomitant]
     Active Substance: METHOCARBAMOL
     Indication: MUSCLE SPASMS
     Dosage: FOUR TIMES DAILY AS NEEDED AS REQUIRED
  11. MOTRIN [Concomitant]
     Active Substance: IBUPROFEN
     Dosage: 600.0MG AS REQUIRED
     Route: 048
  12. NORCO [Concomitant]
     Active Substance: ACETAMINOPHEN\HYDROCODONE BITARTRATE
     Indication: PAIN
     Dosage: 10/325MG EVERY 6 HOURS AS NEEDED
     Route: 048
  13. ASPIRIN. [Concomitant]
     Active Substance: ASPIRIN
     Indication: CHEST PAIN
     Dosage: 325.0MG AS REQUIRED
     Route: 048
  14. VITAMIN D [Concomitant]
     Active Substance: CHOLECALCIFEROL
     Indication: VITAMIN D DEFICIENCY
     Route: 048
  15. OMEPRAZOLE. [Suspect]
     Active Substance: OMEPRAZOLE
     Indication: GASTROOESOPHAGEAL REFLUX DISEASE
     Route: 048
  16. SEROQUEL [Suspect]
     Active Substance: QUETIAPINE FUMARATE
     Indication: BIPOLAR DISORDER
     Route: 048
     Dates: start: 2006
  17. LOPRESSOR [Concomitant]
     Active Substance: METOPROLOL TARTRATE
     Indication: HEART RATE IRREGULAR
     Route: 048
  18. NITROGLYCERIN. [Concomitant]
     Active Substance: NITROGLYCERIN
     Indication: CHEST PAIN
     Dosage: AS REQUIRED
     Route: 048
  19. RESTORIL [Concomitant]
     Active Substance: TEMAZEPAM
     Indication: INSOMNIA
     Route: 048
  20. PROMETHAZINE [Concomitant]
     Active Substance: PROMETHAZINE\PROMETHAZINE HYDROCHLORIDE
     Indication: NAUSEA
     Dosage: 25.0MG AS REQUIRED
     Route: 054
  21. IMITREX [Concomitant]
     Active Substance: SUMATRIPTAN SUCCINATE
     Indication: MIGRAINE
     Dosage: 50.0MG AS REQUIRED
     Route: 048
  22. ZANAFLEX [Concomitant]
     Active Substance: TIZANIDINE HYDROCHLORIDE
     Dosage: 2 TO 4 MG AS NEEDED
     Route: 048
  23. TRILEPTAL [Concomitant]
     Active Substance: OXCARBAZEPINE
     Indication: AFFECTIVE DISORDER
     Route: 048
  24. LAMICTAL [Concomitant]
     Active Substance: LAMOTRIGINE
     Route: 048
  25. FIORICET [Concomitant]
     Active Substance: ACETAMINOPHEN\BUTALBITAL\CAFFEINE
     Indication: MIGRAINE
     Dosage: 50/325/40MG AS REQUIRED
     Route: 048
  26. THORAZINE [Concomitant]
     Active Substance: CHLORPROMAZINE
     Dosage: UNKNOWN
     Route: 048
  27. HALDOL [Concomitant]
     Active Substance: HALOPERIDOL
     Dosage: UNKNOWN
     Route: 048
  28. NORVASC [Concomitant]
     Active Substance: AMLODIPINE BESYLATE
     Indication: HEART RATE IRREGULAR
     Route: 048
  29. MEGACE [Concomitant]
     Active Substance: MEGESTROL ACETATE
     Indication: APPETITE DISORDER
     Route: 048
  30. TRAZODONE [Concomitant]
     Active Substance: TRAZODONE HYDROCHLORIDE
     Dosage: UNKNOWN
     Route: 048
  31. SEROQUEL [Suspect]
     Active Substance: QUETIAPINE FUMARATE
     Indication: BIPOLAR DISORDER
     Route: 048
  32. LITHIUM. [Concomitant]
     Active Substance: LITHIUM
     Indication: PROPHYLAXIS
     Route: 048
  33. SEROQUEL [Suspect]
     Active Substance: QUETIAPINE FUMARATE
     Indication: BIPOLAR DISORDER
     Route: 048
     Dates: start: 2013
  34. REMERON [Concomitant]
     Active Substance: MIRTAZAPINE
     Indication: MUSCLE SPASMS
     Route: 048
  35. COLON SUPPORT PROBIOTIC [Concomitant]
     Dosage: DAILY
     Route: 048
  36. ROBAXIN [Concomitant]
     Active Substance: METHOCARBAMOL
     Indication: MUSCLE SPASMS
     Dosage: 750.0MG AS REQUIRED
     Route: 048

REACTIONS (21)
  - Exposure during pregnancy [Unknown]
  - Seizure [Unknown]
  - Intervertebral disc protrusion [Unknown]
  - Staphylococcal infection [Unknown]
  - Epilepsy [Unknown]
  - Bipolar disorder [Unknown]
  - Constipation [Unknown]
  - Somnolence [Unknown]
  - Foot fracture [Unknown]
  - Nail disorder [Unknown]
  - Infection [Unknown]
  - Vitamin D deficiency [Unknown]
  - Drug ineffective [Unknown]
  - Product use issue [Unknown]
  - Malaise [Unknown]
  - Migraine [Unknown]
  - Gastrooesophageal reflux disease [Unknown]
  - Muscle spasms [Unknown]
  - Road traffic accident [Unknown]
  - Chest pain [Unknown]
  - Off label use [Unknown]

NARRATIVE: CASE EVENT DATE: 1999
